FAERS Safety Report 25321615 (Version 2)
Quarter: 2025Q3

REPORT INFORMATION
  Report Type: Report from Study
  Country: EU (occurrence: EU)
  Receive Date: 20250516
  Receipt Date: 20250803
  Transmission Date: 20251020
  Serious: Yes (Other)
  Sender: ALEXION PHARMACEUTICALS
  Company Number: EU-ASTRAZENECA-202505EEA010797IE

PATIENT
  Sex: Male

DRUGS (14)
  1. BENRALIZUMAB [Suspect]
     Active Substance: BENRALIZUMAB
     Indication: Asthma
  2. BENRALIZUMAB [Suspect]
     Active Substance: BENRALIZUMAB
  3. MIRABEGRON [Concomitant]
     Active Substance: MIRABEGRON
     Route: 050
  4. SOLIFENACIN [Concomitant]
     Active Substance: SOLIFENACIN
     Route: 050
  5. OXYCODONE HYDROCHLORIDE [Concomitant]
     Active Substance: OXYCODONE HYDROCHLORIDE
     Route: 050
  6. OXYCONTIN [Concomitant]
     Active Substance: OXYCODONE HYDROCHLORIDE
     Route: 050
  7. LERCANIDIPINE [Concomitant]
     Active Substance: LERCANIDIPINE
     Route: 050
  8. RAMIPRIL [Concomitant]
     Active Substance: RAMIPRIL
     Route: 050
  9. OMEPRAZOLE [Concomitant]
     Active Substance: OMEPRAZOLE
     Route: 050
  10. ELIQUIS [Concomitant]
     Active Substance: APIXABAN
     Route: 050
  11. VENTOLIN [Concomitant]
     Active Substance: ALBUTEROL SULFATE
     Route: 050
  12. FLUTICASONE FUROATE\VILANTEROL TRIFENATATE [Concomitant]
     Active Substance: FLUTICASONE FUROATE\VILANTEROL TRIFENATATE
     Route: 050
  13. SPIRIVA [Concomitant]
     Active Substance: TIOTROPIUM BROMIDE MONOHYDRATE
     Route: 050
  14. ALVESCO [Concomitant]
     Active Substance: CICLESONIDE
     Route: 050

REACTIONS (1)
  - Lower respiratory tract infection [Recovered/Resolved]
